FAERS Safety Report 20038840 (Version 2)
Quarter: 2022Q2

REPORT INFORMATION
  Report Type: Spontaneous
  Country: US (occurrence: US)
  Receive Date: 20211105
  Receipt Date: 20220517
  Transmission Date: 20220721
  Serious: No
  Sender: FDA-Public Use
  Company Number: US-PFIZER INC-202101482307

PATIENT
  Age: 55 Year
  Sex: Male
  Weight: 109.77 kg

DRUGS (8)
  1. APIXABAN [Suspect]
     Active Substance: APIXABAN
     Indication: Deep vein thrombosis
     Dosage: 5 MG, 2X/DAY (5 MILLIGRAM, BID)
     Route: 048
     Dates: start: 20210505
  2. CELEBREX [Suspect]
     Active Substance: CELECOXIB
     Indication: Sacroiliitis
     Dosage: 200 MG, 1X/DAY
     Dates: start: 2021
  3. CELEBREX [Suspect]
     Active Substance: CELECOXIB
     Dosage: 200 MG, 1X/DAY
     Dates: start: 20210922
  4. ASPIRIN [Concomitant]
     Active Substance: ASPIRIN
     Dosage: UNK, 1X/DAY
  5. ELIQUIS [Concomitant]
     Active Substance: APIXABAN
     Indication: Anticoagulant therapy
     Dosage: 5 MG, 2X/DAY
  6. OXYCODONE [Concomitant]
     Active Substance: OXYCODONE
     Indication: Pain
     Dosage: UNK
  7. PREDNISONE [Concomitant]
     Active Substance: PREDNISONE
     Indication: Muscle swelling
     Dosage: 20 MG, AS NEEDED (3 A WEEK)
  8. TIZANIDINE [Concomitant]
     Active Substance: TIZANIDINE
     Indication: Swelling
     Dosage: 4 MG, AS NEEDED

REACTIONS (1)
  - Peripheral swelling [Not Recovered/Not Resolved]

NARRATIVE: CASE EVENT DATE: 20210924
